FAERS Safety Report 6377554-1 (Version None)
Quarter: 2009Q3

REPORT INFORMATION
  Report Type: 
  Country: None (occurrence: None)
  Receive Date: 20090923
  Receipt Date: 20090923
  Transmission Date: 20100115
  Serious: Yes (Hospitalization)
  Sender: FDA-Public Use
  Company Number: None

PATIENT
  Age: 58 Year
  Sex: Male
  Weight: 62.3 kg

DRUGS (15)
  1. METFORMIN HCL [Suspect]
     Indication: DIABETES MELLITUS
     Dosage: 500MG BID PO
     Route: 048
     Dates: end: 20090802
  2. COMBIVIR [Suspect]
     Indication: HIV INFECTION
     Dosage: 300/150MG Q12H PO
     Route: 048
     Dates: end: 20090802
  3. ASPIRIN [Concomitant]
  4. CALC.CARB + VITD [Concomitant]
  5. CARBIDOPA-LEVODOPA [Concomitant]
  6. LEXIVA [Concomitant]
  7. METOPROLOL [Concomitant]
  8. NORVIR [Concomitant]
  9. PLAVIX [Concomitant]
  10. PRAVASTATIN [Concomitant]
  11. TRICOR [Concomitant]
  12. VASOTEC [Concomitant]
  13. ZANTAC [Concomitant]
  14. MS CONTIN [Concomitant]
  15. GABAPENTIN [Concomitant]

REACTIONS (3)
  - ABDOMINAL PAIN [None]
  - BLOOD LACTIC ACID ABNORMAL [None]
  - NAUSEA [None]
